FAERS Safety Report 12162629 (Version 11)
Quarter: 2017Q1

REPORT INFORMATION
  Report Type: Spontaneous
  Country: US (occurrence: US)
  Receive Date: 20160309
  Receipt Date: 20170316
  Transmission Date: 20170428
  Serious: Yes (Hospitalization, Other)
  Sender: FDA-Public Use
  Company Number: US-PFIZER INC-2016120238

PATIENT
  Age: 80 Year
  Sex: Male
  Weight: 85 kg

DRUGS (13)
  1. GLIPIZIDE. [Concomitant]
     Active Substance: GLIPIZIDE
     Dosage: UNK
  2. MIRACLE MINERAL SOLUTION [Concomitant]
     Active Substance: SODIUM CHLORITE
     Dosage: UNK
  3. SUTENT [Suspect]
     Active Substance: SUNITINIB MALATE
     Dosage: 25 MG, 1X/DAY
     Dates: start: 20160309
  4. SUTENT [Suspect]
     Active Substance: SUNITINIB MALATE
     Dosage: 37.5 MG, DAILY
     Route: 048
     Dates: start: 201604, end: 20161003
  5. SIMVASTATIN. [Concomitant]
     Active Substance: SIMVASTATIN
     Dosage: UNK
  6. SUTENT [Suspect]
     Active Substance: SUNITINIB MALATE
     Dosage: 25 MG, DAILY
     Route: 048
     Dates: start: 201602, end: 201604
  7. COZAAR [Concomitant]
     Active Substance: LOSARTAN POTASSIUM
     Dosage: UNK
  8. SUTENT [Suspect]
     Active Substance: SUNITINIB MALATE
     Indication: METASTATIC RENAL CELL CARCINOMA
     Dosage: 25 MG, DAILY
     Dates: start: 20160209
  9. FLAXSEED [Concomitant]
     Active Substance: FLAX SEED
     Dosage: UNK
  10. TURMERIC [Concomitant]
     Active Substance: TURMERIC
     Dosage: UNK
  11. SUTENT [Suspect]
     Active Substance: SUNITINIB MALATE
     Dosage: 37.5 MG, DAILY IN THE EVENING
  12. ACTOS [Concomitant]
     Active Substance: PIOGLITAZONE HYDROCHLORIDE
     Dosage: UNK
  13. GREEN TEA EXTRACT [Concomitant]
     Dosage: UNK

REACTIONS (22)
  - Fatigue [Unknown]
  - Oral pain [Recovering/Resolving]
  - Food allergy [Unknown]
  - Palmar-plantar erythrodysaesthesia syndrome [Unknown]
  - Myelopathy [Unknown]
  - Glossitis [Recovering/Resolving]
  - Tooth disorder [Recovering/Resolving]
  - Hair colour changes [Unknown]
  - Stomatitis [Unknown]
  - Poor quality sleep [Unknown]
  - Epistaxis [Unknown]
  - Weight increased [Recovered/Resolved]
  - Tongue blistering [Not Recovered/Not Resolved]
  - Nasal discomfort [Unknown]
  - Sensory loss [Unknown]
  - Cervical spinal stenosis [Unknown]
  - Muscle spasms [Unknown]
  - Decreased appetite [Unknown]
  - Glossodynia [Recovering/Resolving]
  - Lip pain [Recovering/Resolving]
  - Ageusia [Unknown]
  - Peripheral swelling [Not Recovered/Not Resolved]

NARRATIVE: CASE EVENT DATE: 20160316
